FAERS Safety Report 8808753 (Version 2)
Quarter: 2012Q4

REPORT INFORMATION
  Report Type: 
  Country: US (occurrence: US)
  Receive Date: 20120926
  Receipt Date: 20121017
  Transmission Date: 20130627
  Serious: Yes (Hospitalization)
  Sender: FDA-Public Use
  Company Number: US-JNJFOC-20120909035

PATIENT
  Age: 25 Year
  Sex: Female
  Weight: 51.26 kg

DRUGS (3)
  1. NUCYNTA ER [Suspect]
     Indication: PAIN
     Dosage: three times a day
     Route: 048
  2. BACLOFEN [Suspect]
     Indication: MUSCLE SPASMS
     Dosage: three times a day
     Route: 048
  3. LYRICA [Suspect]
     Indication: PAIN
     Dosage: twice a day
     Route: 048

REACTIONS (11)
  - Nystagmus [Unknown]
  - Neck pain [Unknown]
  - Mental status changes [Recovered/Resolved]
  - Unresponsive to stimuli [Recovered/Resolved]
  - Syncope [Recovered/Resolved]
  - Diplopia [Unknown]
  - Dyskinesia [Unknown]
  - Muscle spasms [Unknown]
  - Toxicity to various agents [Unknown]
  - Lethargy [Unknown]
  - Fatigue [Unknown]
